FAERS Safety Report 26005915 (Version 1)
Quarter: 2025Q4

REPORT INFORMATION
  Report Type: Spontaneous
  Country: US (occurrence: None)
  Receive Date: 20251105
  Receipt Date: 20251105
  Transmission Date: 20260119
  Serious: Yes (Hospitalization)
  Sender: FDA-CTU
  Company Number: None

PATIENT
  Age: 39 Year
  Sex: Female

DRUGS (11)
  1. TACROLIMUS [Suspect]
     Active Substance: TACROLIMUS
     Indication: Renal transplant
     Dosage: 2MG BID ORAL
     Route: 048
     Dates: start: 20220615
  2. FISH OIL [Concomitant]
     Active Substance: FISH OIL
  3. PREDNISONE [Concomitant]
     Active Substance: PREDNISONE
  4. PROMETHAZINE [Concomitant]
     Active Substance: PROMETHAZINE HYDROCHLORIDE
  5. FUROSEMIDE [Concomitant]
     Active Substance: FUROSEMIDE
  6. OXYCONTIN [Concomitant]
     Active Substance: OXYCODONE HYDROCHLORIDE
  7. LEVOFLOXACIN [Concomitant]
     Active Substance: LEVOFLOXACIN
  8. CLINDAMYCIN [Concomitant]
     Active Substance: CLINDAMYCIN
  9. GABAPENTIN [Concomitant]
     Active Substance: GABAPENTIN
  10. RIZATRIPTAN [Concomitant]
     Active Substance: RIZATRIPTAN
  11. CALCITRIOL [Concomitant]
     Active Substance: CALCITRIOL

REACTIONS (1)
  - Kidney infection [None]
